FAERS Safety Report 5351694-8 (Version None)
Quarter: 2007Q2

REPORT INFORMATION
  Report Type: 
  Country: None (occurrence: None)
  Receive Date: 20070518
  Receipt Date: 20070214
  Transmission Date: 20071010
  Serious: No
  Sender: FDA-Public Use
  Company Number: TPA2007A00386

PATIENT
  Sex: Female

DRUGS (3)
  1. ROZEREM [Suspect]
     Dosage: 8 MG, HS, PER ORAL
     Route: 048
     Dates: start: 20060801
  2. KLONOPIN [Concomitant]
  3. AMBIEN CR [Concomitant]

REACTIONS (1)
  - DRUG INEFFECTIVE [None]
